FAERS Safety Report 6925122-2 (Version None)
Quarter: 2010Q3

REPORT INFORMATION
  Report Type: 
  Country: None (occurrence: None)
  Receive Date: 20100816
  Receipt Date: 20100804
  Transmission Date: 20110219
  Serious: Yes (Hospitalization, Other)
  Sender: FDA-Public Use
  Company Number: US-PFIZER INC-2010100865

PATIENT
  Sex: Male

DRUGS (1)
  1. CHANTIX [Suspect]
     Dosage: UNK

REACTIONS (5)
  - HIP ARTHROPLASTY [None]
  - LOSS OF CONSCIOUSNESS [None]
  - MULTIPLE FRACTURES [None]
  - ROAD TRAFFIC ACCIDENT [None]
  - SCAR [None]
